FAERS Safety Report 16897710 (Version 1)
Quarter: 2019Q4

REPORT INFORMATION
  Report Type: Spontaneous
  Country: FR (occurrence: FR)
  Receive Date: 20191009
  Receipt Date: 20191009
  Transmission Date: 20200122
  Serious: Yes (Hospitalization, Other)
  Sender: FDA-Public Use
  Company Number: FR-ALEMBIC PHARMACUETICALS LIMITED-2019SCAL000738

PATIENT

DRUGS (3)
  1. METHYLPHENIDATE HYDROCHLORIDE. [Interacting]
     Active Substance: METHYLPHENIDATE HYDROCHLORIDE
     Indication: CATAPLEXY
     Dosage: 40 MG
     Route: 065
     Dates: start: 201505
  2. PITOLISANT [Interacting]
     Active Substance: PITOLISANT
     Indication: NARCOLEPSY
     Dosage: 18 MILLIGRAM
     Route: 065
     Dates: start: 201709
  3. VENLAFAXINE CAPSULE [Suspect]
     Active Substance: VENLAFAXINE HYDROCHLORIDE
     Indication: CATAPLEXY
     Dosage: 150 MILLIGRAM
     Route: 065
     Dates: start: 201505

REACTIONS (2)
  - Splenic infarction [Recovered/Resolved]
  - Drug interaction [Recovered/Resolved]

NARRATIVE: CASE EVENT DATE: 20180428
